FAERS Safety Report 8354725-6 (Version None)
Quarter: 2012Q2

REPORT INFORMATION
  Report Type: 
  Country: None (occurrence: None)
  Receive Date: 20120511
  Receipt Date: 20120501
  Transmission Date: 20120825
  Serious: Yes (Life-Threatening, Hospitalization, Other)
  Sender: FDA-Public Use
  Company Number: US-GLAXOSMITHKLINE-A0973676A

PATIENT
  Age: 21 Year
  Sex: Female
  Weight: 61.4 kg

DRUGS (3)
  1. WELLBUTRIN [Concomitant]
     Indication: DEPRESSION
     Dosage: 75MG PER DAY
     Dates: start: 20120301
  2. LEXAPRO [Concomitant]
  3. LAMICTAL [Suspect]
     Indication: DEPRESSION
     Dosage: 25MG TWICE PER DAY
     Route: 048
     Dates: start: 20120301, end: 20120301

REACTIONS (60)
  - HYPOTENSION [None]
  - INTENTION TREMOR [None]
  - LEUKOCYTOCLASTIC VASCULITIS [None]
  - ABDOMINAL DISCOMFORT [None]
  - MULTI-ORGAN FAILURE [None]
  - PLATELET DISORDER [None]
  - ACUTE RESPIRATORY FAILURE [None]
  - LYMPHADENOPATHY [None]
  - BLOOD TRIGLYCERIDES INCREASED [None]
  - SEPTIC SHOCK [None]
  - SYNCOPE [None]
  - ORTHOSTATIC HYPOTENSION [None]
  - DIZZINESS [None]
  - LETHARGY [None]
  - SPLENOMEGALY [None]
  - AGITATION [None]
  - XANTHOCHROMIA [None]
  - CONJUNCTIVAL HAEMORRHAGE [None]
  - SHOCK [None]
  - RENAL FAILURE ACUTE [None]
  - INITIAL INSOMNIA [None]
  - CHEST X-RAY ABNORMAL [None]
  - RASH [None]
  - DIARRHOEA [None]
  - HYPERHIDROSIS [None]
  - TRANSAMINASES INCREASED [None]
  - ELECTROCARDIOGRAM QT PROLONGED [None]
  - HEPATOSPLENOMEGALY [None]
  - EYE MOVEMENT DISORDER [None]
  - BLOOD CREATININE INCREASED [None]
  - RESPIRATORY RATE INCREASED [None]
  - HISTIOCYTOSIS HAEMATOPHAGIC [None]
  - HYPOPHAGIA [None]
  - ENCEPHALOPATHY [None]
  - PLEURAL EFFUSION [None]
  - CARDIOMEGALY [None]
  - PYREXIA [None]
  - NAUSEA [None]
  - OROPHARYNGEAL PAIN [None]
  - HYPERTRIGLYCERIDAEMIA [None]
  - GALLBLADDER OEDEMA [None]
  - DEPRESSED LEVEL OF CONSCIOUSNESS [None]
  - PANCYTOPENIA [None]
  - SUBDURAL HAEMORRHAGE [None]
  - LYMPHOPENIA [None]
  - ULTRASOUND ABDOMEN ABNORMAL [None]
  - VOMITING [None]
  - SERUM FERRITIN INCREASED [None]
  - ASCITES [None]
  - STRIDOR [None]
  - PULMONARY OEDEMA [None]
  - HYPERSENSITIVITY [None]
  - MENTAL STATUS CHANGES [None]
  - ASTHENIA [None]
  - CHILLS [None]
  - UNEVALUABLE EVENT [None]
  - CONDITION AGGRAVATED [None]
  - CONJUNCTIVAL OEDEMA [None]
  - URINE OUTPUT DECREASED [None]
  - ULTRASOUND LIVER ABNORMAL [None]
